FAERS Safety Report 9050776 (Version 3)
Quarter: 2013Q2

REPORT INFORMATION
  Report Type: Spontaneous
  Country: CZ (occurrence: CZ)
  Receive Date: 20130205
  Receipt Date: 20130502
  Transmission Date: 20140414
  Serious: Yes (Other)
  Sender: FDA-Public Use
  Company Number: CZ-BIOGENIDEC-2013BI009624

PATIENT
  Age: 32 Year
  Sex: Female
  Weight: 58 kg

DRUGS (2)
  1. AVONEX [Suspect]
     Indication: EXPOSURE VIA PARTNER
     Route: 030
     Dates: start: 20100426, end: 20101129
  2. PREDNISON [Concomitant]
     Route: 048
     Dates: start: 201004

REACTIONS (2)
  - Pre-eclampsia [Recovered/Resolved]
  - Pregnancy [Unknown]
